FAERS Safety Report 13199225 (Version 6)
Quarter: 2018Q2

REPORT INFORMATION
  Report Type: Report from Study
  Country: None (occurrence: NL)
  Receive Date: 20170208
  Receipt Date: 20180626
  Transmission Date: 20180711
  Serious: Yes (Other)
  Sender: FDA-Public Use
  Company Number: NL-ABBVIE-16P-114-1770945-00

PATIENT
  Age: 66 Year
  Sex: Male
  Weight: 100 kg

DRUGS (3)
  1. DUODOPA [Suspect]
     Active Substance: CARBIDOPA\LEVODOPA
     Indication: PARKINSON^S DISEASE
     Dosage: MORNING DOSE: 10, CONTINUOUS DOSE: 4.7, EXTRA DOSE: 2.5
     Route: 050
     Dates: start: 20080923
  2. DUODOPA [Suspect]
     Active Substance: CARBIDOPA\LEVODOPA
     Dosage: MORNING DOSE: 8.0 CONTINUOUS DOSE: 5.2  EXTRA DOSE: 3.0
     Route: 050
  3. DUODOPA [Suspect]
     Active Substance: CARBIDOPA\LEVODOPA
     Dosage: MORNING DOSE: 8.0 CONTINUOUS DOSE: 2.8 EXTRA DOSE: 3.0
     Route: 050

REACTIONS (15)
  - Stoma site haemorrhage [Recovered/Resolved]
  - Stoma site erythema [Not Recovered/Not Resolved]
  - Hallucination [Not Recovered/Not Resolved]
  - Embedded device [Unknown]
  - Back pain [Not Recovered/Not Resolved]
  - Stoma site haemorrhage [Recovered/Resolved]
  - Fungal infection [Recovered/Resolved]
  - Stoma site reaction [Recovering/Resolving]
  - Stoma site reaction [Not Recovered/Not Resolved]
  - Fungal infection [Not Recovered/Not Resolved]
  - Infrequent bowel movements [Not Recovered/Not Resolved]
  - Weight increased [Not Recovered/Not Resolved]
  - Hyperhidrosis [Not Recovered/Not Resolved]
  - Stoma site discharge [Not Recovered/Not Resolved]
  - Parkinson^s disease [Not Recovered/Not Resolved]

NARRATIVE: CASE EVENT DATE: 20170101
